FAERS Safety Report 9252277 (Version 4)
Quarter: 2014Q1

REPORT INFORMATION
  Report Type: Spontaneous
  Country: US (occurrence: US)
  Receive Date: 20130424
  Receipt Date: 20140122
  Transmission Date: 20141002
  Serious: Yes (Hospitalization, Other)
  Sender: FDA-Public Use
  Company Number: US-ASTRAZENECA-2013SE27336

PATIENT
  Age: 60 Year
  Sex: Female
  Weight: 56.7 kg

DRUGS (19)
  1. NEXIUM [Suspect]
     Indication: GASTROOESOPHAGEAL REFLUX DISEASE
     Route: 048
  2. NEXIUM [Suspect]
     Indication: GASTROOESOPHAGEAL REFLUX DISEASE
     Dosage: FOR A LONG PERIOD OF TIME- THE PURPLE PILL 100 MG, ONCE A DAY
     Route: 048
  3. NEXIUM [Suspect]
     Indication: GASTROOESOPHAGEAL REFLUX DISEASE
     Route: 048
     Dates: start: 20040909
  4. PRILOSEC [Suspect]
     Route: 048
  5. PRILOSEC [Suspect]
     Route: 048
     Dates: start: 20070430
  6. PREVACID [Concomitant]
  7. PROTONIX [Concomitant]
  8. ZANTAC [Concomitant]
  9. TAGAMET [Concomitant]
  10. PEPCID [Concomitant]
  11. ANTACIDS OTC [Concomitant]
  12. LISINOPRIL [Concomitant]
     Indication: HYPERTENSION
  13. PREMARIN [Concomitant]
     Indication: HORMONE REPLACEMENT THERAPY
  14. BONIVA [Concomitant]
     Indication: BONE DISORDER
  15. FOSAMAX [Concomitant]
     Indication: BONE DISORDER
  16. LITHIUM [Concomitant]
     Indication: ILL-DEFINED DISORDER
  17. LITHIUM [Concomitant]
     Indication: DEPRESSION
  18. HYDROCHLOROTHIAZIDE [Concomitant]
     Dates: start: 20040909
  19. LORTAB [Concomitant]
     Dates: start: 20040909

REACTIONS (12)
  - Hip fracture [Unknown]
  - Musculoskeletal discomfort [Unknown]
  - Osteoporosis [Unknown]
  - Bone disorder [Unknown]
  - Multiple fractures [Unknown]
  - Osteopenia [Unknown]
  - Fall [Unknown]
  - Multiple injuries [Unknown]
  - Memory impairment [Unknown]
  - Arthritis [Unknown]
  - Arthralgia [Unknown]
  - Depression [Unknown]
